FAERS Safety Report 7330688-7 (Version None)
Quarter: 2011Q1

REPORT INFORMATION
  Report Type: 
  Country: None (occurrence: None)
  Receive Date: 20110304
  Receipt Date: 20100908
  Transmission Date: 20110831
  Serious: Yes (Other)
  Sender: FDA-Public Use
  Company Number: US-BAYER-201019694NA

PATIENT
  Sex: Female
  Weight: 61.224 kg

DRUGS (13)
  1. SYNTHROID [Concomitant]
  2. WELLBUTRIN [Concomitant]
  3. ADVIL LIQUI-GELS [Concomitant]
  4. ASCORBIC ACID [Concomitant]
  5. MAALOX [Concomitant]
     Indication: GASTROINTESTINAL DISORDER
     Dosage: UNK
     Dates: start: 20071211
  6. OCELLA [Suspect]
     Indication: PREMENSTRUAL SYNDROME
     Dosage: UNK
     Dates: start: 20080704, end: 20080804
  7. OCELLA [Suspect]
     Dosage: UNK
     Dates: start: 20081130, end: 20100124
  8. YASMIN [Suspect]
     Indication: PREMENSTRUAL SYNDROME
     Dosage: UNK
     Route: 048
     Dates: start: 20070705, end: 20080608
  9. CHOLESTYRAMINE [Concomitant]
  10. NSAID'S [Concomitant]
     Indication: PAIN
  11. YAZ [Suspect]
     Indication: PRODUCT USED FOR UNKNOWN INDICATION
     Route: 048
  12. PRILOSEC [Concomitant]
  13. ZANTAC [Concomitant]

REACTIONS (5)
  - CHOLECYSTITIS CHRONIC [None]
  - IRRITABLE BOWEL SYNDROME [None]
  - GALLBLADDER NON-FUNCTIONING [None]
  - BILIARY COLIC [None]
  - NEPHROLITHIASIS [None]
